FAERS Safety Report 25161992 (Version 1)
Quarter: 2025Q2

REPORT INFORMATION
  Report Type: Spontaneous
  Country: US (occurrence: US)
  Receive Date: 20250404
  Receipt Date: 20250404
  Transmission Date: 20250716
  Serious: No
  Sender: ALEXION PHARMACEUTICALS
  Company Number: US-HALEON-2235703

PATIENT
  Age: 58 Year

DRUGS (1)
  1. NEXIUM [Suspect]
     Active Substance: ESOMEPRAZOLE MAGNESIUM

REACTIONS (6)
  - Flushing [Recovering/Resolving]
  - Dizziness [Unknown]
  - Nausea [Unknown]
  - Feeding disorder [Recovering/Resolving]
  - Dry mouth [Unknown]
  - Gait disturbance [Unknown]
